FAERS Safety Report 20533961 (Version 1)
Quarter: 2022Q1

REPORT INFORMATION
  Report Type: Report from Study
  Country: PA (occurrence: PA)
  Receive Date: 20220301
  Receipt Date: 20220301
  Transmission Date: 20220423
  Serious: Yes (Other)
  Sender: FDA-Public Use
  Company Number: PA-JNJFOC-20220247280

PATIENT
  Age: 42 Year
  Sex: Female
  Weight: 64 kg

DRUGS (2)
  1. SPRAVATO [Suspect]
     Active Substance: ESKETAMINE
     Indication: Major depression
     Dates: start: 20211216
  2. SPRAVATO [Suspect]
     Active Substance: ESKETAMINE
     Indication: Suicidal ideation

REACTIONS (4)
  - Suicidal ideation [Unknown]
  - Blister [Unknown]
  - Emotional distress [Unknown]
  - Feeling abnormal [Unknown]

NARRATIVE: CASE EVENT DATE: 20220201
